FAERS Safety Report 5683107-0 (Version None)
Quarter: 2008Q1

REPORT INFORMATION
  Report Type: 
  Country: None (occurrence: None)
  Receive Date: 20080327
  Receipt Date: 20080324
  Transmission Date: 20080703
  Serious: Yes (Death, Life-Threatening, Hospitalization, Other)
  Sender: FDA-Public Use
  Company Number: JP-WYE-H02011408

PATIENT
  Sex: Male
  Weight: 51 kg

DRUGS (14)
  1. MYLOTARG [Suspect]
     Indication: ACUTE MYELOID LEUKAEMIA RECURRENT
     Route: 041
     Dates: start: 20070621, end: 20070621
  2. CYTARABINE [Suspect]
     Indication: ACUTE MYELOID LEUKAEMIA RECURRENT
     Dosage: DOSE AND FREQUENCY WAS NOT PROVIDED
     Route: 042
     Dates: start: 20070618, end: 20070620
  3. CYTARABINE [Suspect]
     Dosage: DOSE AND FREQUENCY NOT PROVIDED
     Route: 042
     Dates: start: 20070708, end: 20070709
  4. OMEPRAL [Concomitant]
     Indication: PROPHYLAXIS
     Route: 048
     Dates: start: 20070613, end: 20071025
  5. FOY [Concomitant]
     Route: 041
     Dates: start: 20070623, end: 20070625
  6. FUTHAN [Concomitant]
     Route: 041
     Dates: start: 20070625, end: 20070702
  7. ORGARAN [Concomitant]
     Route: 042
     Dates: start: 20070703, end: 20070710
  8. CRAVIT [Concomitant]
     Indication: PROPHYLAXIS
     Route: 048
     Dates: start: 20070613, end: 20070701
  9. CRAVIT [Concomitant]
     Route: 048
     Dates: start: 20070816, end: 20070912
  10. CRAVIT [Concomitant]
     Route: 048
     Dates: start: 20070920, end: 20070924
  11. CRAVIT [Concomitant]
     Route: 048
     Dates: start: 20071001, end: 20071004
  12. CRAVIT [Concomitant]
     Route: 048
     Dates: start: 20071012, end: 20071025
  13. DIFLUCAN [Concomitant]
     Indication: PROPHYLAXIS
     Route: 048
     Dates: start: 20070613, end: 20070710
  14. DIFLUCAN [Concomitant]
     Route: 048
     Dates: start: 20070731, end: 20071025

REACTIONS (6)
  - ANAEMIA [None]
  - CEREBRAL HAEMORRHAGE [None]
  - DISSEMINATED INTRAVASCULAR COAGULATION [None]
  - FEBRILE NEUTROPENIA [None]
  - PLATELET COUNT DECREASED [None]
  - SEPSIS [None]
